FAERS Safety Report 4734494-9 (Version None)
Quarter: 2005Q3

REPORT INFORMATION
  Report Type: 
  Country: None (occurrence: None)
  Receive Date: 20050721
  Receipt Date: 20050419
  Transmission Date: 20060218
  Serious: No
  Sender: FDA-Public Use
  Company Number: 2005SP000244

PATIENT
  Age: 85 Year
  Sex: Female

DRUGS (6)
  1. LUNESTA [Suspect]
     Dosage: 1 MG;HS;ORAL; SEE IMAGE
     Route: 048
     Dates: start: 20050413, end: 20050413
  2. LUNESTA [Suspect]
     Dosage: 1 MG;HS;ORAL; SEE IMAGE
     Route: 048
     Dates: start: 20050414, end: 20050414
  3. LUNESTA [Suspect]
     Dosage: 1 MG;HS;ORAL; SEE IMAGE
     Route: 048
     Dates: start: 20050415
  4. ALDACTONE [Concomitant]
  5. KLONOPIN [Concomitant]
  6. AMLODIPINE [Concomitant]

REACTIONS (4)
  - ARTHRALGIA [None]
  - BLOOD PRESSURE INCREASED [None]
  - HEADACHE [None]
  - INSOMNIA [None]
